FAERS Safety Report 6294498-4 (Version None)
Quarter: 2009Q3

REPORT INFORMATION
  Report Type: 
  Country: None (occurrence: None)
  Receive Date: 20090803
  Receipt Date: 20090722
  Transmission Date: 20100115
  Serious: Yes (Other)
  Sender: FDA-Public Use
  Company Number: US-PFIZER INC-2009246094

PATIENT
  Sex: Female
  Weight: 46.259 kg

DRUGS (7)
  1. LYRICA [Suspect]
     Indication: NEURALGIA
     Dosage: 50 MG, 2X/DAY
     Dates: start: 20080901
  2. LYRICA [Suspect]
     Indication: BURNING SENSATION
     Dosage: 100 MG, 2X/DAY
     Dates: start: 20080101, end: 20090401
  3. LYRICA [Suspect]
     Indication: PAIN
  4. LAMOTRIGINE [Concomitant]
     Dosage: UNK
  5. ALPRAZOLAM [Concomitant]
     Dosage: UNK
  6. BUPROPION [Concomitant]
     Dosage: UNK
  7. ZIPRASIDONE [Concomitant]
     Dosage: UNK

REACTIONS (7)
  - BLOOD CREATININE DECREASED [None]
  - DEPRESSION [None]
  - EMOTIONAL DISORDER [None]
  - IMPAIRED WORK ABILITY [None]
  - PAIN [None]
  - TEARFULNESS [None]
  - WEIGHT DECREASED [None]
